FAERS Safety Report 8836902 (Version 2)
Quarter: 2012Q4

REPORT INFORMATION
  Report Type: Report from Study
  Country: US (occurrence: US)
  Receive Date: 20121012
  Receipt Date: 20121017
  Transmission Date: 20130627
  Serious: Yes (Death)
  Sender: FDA-Public Use
  Company Number: US-ACTELION-A-US2012-72790

PATIENT
  Age: 84 Year
  Sex: Female

DRUGS (2)
  1. VENTAVIS [Suspect]
     Indication: PULMONARY ARTERIAL HYPERTENSION
     Dosage: 5 ?g, 6 x day
     Route: 055
     Dates: end: 20121007
  2. TRACLEER [Concomitant]
     Dosage: UNK
     Route: 048
     Dates: end: 20121007

REACTIONS (2)
  - Acute respiratory failure [Fatal]
  - Anaemia [Fatal]
